FAERS Safety Report 11246665 (Version 1)
Quarter: 2015Q3

REPORT INFORMATION
  Report Type: Report from Study
  Country: US (occurrence: None)
  Receive Date: 20150706
  Receipt Date: 20150706
  Transmission Date: 20151125
  Serious: Yes (Hospitalization)
  Sender: FDA-Public Use
  Company Number: US-2010VAL000172

PATIENT
  Age: 54 Year
  Sex: Male
  Weight: 93.9 kg

DRUGS (12)
  1. ATENOLOL. [Concomitant]
     Active Substance: ATENOLOL
  2. LASIX [Concomitant]
     Active Substance: FUROSEMIDE
  3. LORTAB (HYDROCCODONE BITARTRATE, PARACETAMOL) [Concomitant]
  4. METOPROLOL TARTRATE. [Suspect]
     Active Substance: METOPROLOL TARTRATE
     Indication: PRODUCT USED FOR UNKNOWN INDICATION
     Route: 048
     Dates: start: 20100715
  5. ALISKIREN [Suspect]
     Active Substance: ALISKIREN
     Indication: CARDIAC FAILURE
     Dosage: CODE NOT BROKEN
     Route: 048
     Dates: start: 20100618, end: 20100706
  6. PLAVIX [Concomitant]
     Active Substance: CLOPIDOGREL BISULFATE
  7. CARAFATE (SUCRA;FATE) [Concomitant]
  8. ZANTAC (RANITDINE HYDROCHLORIDE) [Concomitant]
  9. SIMVASTATIN. [Concomitant]
     Active Substance: SIMVASTATIN
  10. PRAVASTATIN [Concomitant]
     Active Substance: PRAVASTATIN\PRAVASTATIN SODIUM
  11. DEXLANSOPRAZOLE [Concomitant]
     Active Substance: DEXLANSOPRAZOLE
  12. ASPIRIN (ACETYLSALICYLIC ACID) [Concomitant]
     Active Substance: ASPIRIN

REACTIONS (4)
  - Coronary artery disease [None]
  - Angina unstable [None]
  - Concomitant disease progression [None]
  - Hypotension [None]

NARRATIVE: CASE EVENT DATE: 20100825
